FAERS Safety Report 10195409 (Version 2)
Quarter: 2014Q2

REPORT INFORMATION
  Report Type: Report from Study
  Country: CA (occurrence: CA)
  Receive Date: 20140526
  Receipt Date: 20140607
  Transmission Date: 20141212
  Serious: Yes (Other)
  Sender: FDA-Public Use
  Company Number: PHHY2014CA064062

PATIENT
  Age: 64 Year
  Sex: Female

DRUGS (8)
  1. ACLASTA [Suspect]
     Indication: OSTEOPOROSIS
     Dosage: UNK UKN, YEARLY
     Route: 042
     Dates: start: 20080915
  2. ACLASTA [Suspect]
     Dosage: UNK UKN, YEARLY
     Route: 042
     Dates: start: 20090814
  3. ACLASTA [Suspect]
     Dosage: UNK UKN, YEARLY
     Route: 042
     Dates: start: 20100811
  4. ACLASTA [Suspect]
     Dosage: UNK UKN, YEARLY
     Route: 042
     Dates: start: 20110811
  5. ACLASTA [Suspect]
     Dosage: UNK UKN, YEARLY
     Route: 042
     Dates: start: 20120816
  6. ACLASTA [Suspect]
     Dosage: UNK UKN, YEARLY
     Route: 042
     Dates: start: 20130821
  7. 5-FLUOROURACIL [Concomitant]
     Indication: ACTINIC KERATOSIS
  8. DESONIDE [Concomitant]
     Indication: ACTINIC KERATOSIS

REACTIONS (5)
  - Precancerous skin lesion [Unknown]
  - Dental caries [Unknown]
  - Gingival pain [Unknown]
  - Inappropriate schedule of drug administration [Unknown]
  - Pain in jaw [Unknown]
